FAERS Safety Report 8510732-1 (Version None)
Quarter: 2012Q3

REPORT INFORMATION
  Report Type: 
  Country: None (occurrence: None)
  Receive Date: 20120716
  Receipt Date: 20120710
  Transmission Date: 20120928
  Serious: Yes (Other)
  Sender: FDA-Public Use
  Company Number: US-PFIZER INC-2012167384

PATIENT
  Sex: Male
  Weight: 86.168 kg

DRUGS (2)
  1. PROPECIA [Concomitant]
     Indication: HAIR GROWTH ABNORMAL
     Dosage: UNK, DAILY
     Route: 048
  2. VENLAFAXINE HCL [Suspect]
     Indication: ANXIETY
     Dosage: 37.5 MG, 1X/DAY
     Route: 048
     Dates: start: 20120705, end: 20120705

REACTIONS (8)
  - PAIN IN EXTREMITY [None]
  - EYELID OEDEMA [None]
  - DYSPNOEA [None]
  - HEADACHE [None]
  - LOSS OF CONSCIOUSNESS [None]
  - SWELLING FACE [None]
  - CHEST PAIN [None]
  - RASH [None]
